FAERS Safety Report 7516068-X (Version None)
Quarter: 2011Q2

REPORT INFORMATION
  Report Type: 
  Country: None (occurrence: None)
  Receive Date: 20110520
  Receipt Date: 20110504
  Transmission Date: 20111010
  Serious: Yes (Hospitalization)
  Sender: FDA-Public Use
  Company Number: UTC-006887

PATIENT
  Age: 30 Year
  Sex: Female
  Weight: 90.3 kg

DRUGS (11)
  1. PREDNISONE [Concomitant]
  2. TRIAMCINOLONE CREAM (TRIAMCINOLONE) [Concomitant]
  3. PHENERGAN [Concomitant]
  4. REMODULIN [Suspect]
     Indication: PULMONARY HYPERTENSION
     Dosage: 180 UG/KG (0.125 UG/KG, 1 IN 1 MIN) SUBCUTANEOUS, 0.102 UG/KG, RATE OF 0.062 ML/HR) SUBCUTANEOUS
     Route: 058
     Dates: start: 20110301
  5. REMODULIN [Suspect]
     Indication: PULMONARY HYPERTENSION
     Dosage: 180 UG/KG (0.125 UG/KG, 1 IN 1 MIN) SUBCUTANEOUS, 0.102 UG/KG, RATE OF 0.062 ML/HR) SUBCUTANEOUS
     Route: 058
     Dates: start: 20081209
  6. LASIX [Concomitant]
  7. ZOFRAN [Concomitant]
  8. OXYGEN (OXYGEN) [Concomitant]
  9. IMURAN [Suspect]
     Indication: PULMONARY FIBROSIS
     Dosage: 100 MG 1 D, ORAL
     Route: 048
  10. TRAMADOL HCL [Concomitant]
  11. REVATIO (SILENAFIL CITRATE) [Concomitant]

REACTIONS (9)
  - VOMITING [None]
  - HYPOKALAEMIA [None]
  - PANCYTOPENIA [None]
  - WEIGHT DECREASED [None]
  - HYPOMAGNESAEMIA [None]
  - DIARRHOEA [None]
  - DECREASED APPETITE [None]
  - NAUSEA [None]
  - BONE MARROW FAILURE [None]
